FAERS Safety Report 4900725-5 (Version None)
Quarter: 2006Q1

REPORT INFORMATION
  Report Type: 
  Country: None (occurrence: None)
  Receive Date: 20060201
  Receipt Date: 20060118
  Transmission Date: 20060701
  Serious: Yes (Hospitalization)
  Sender: FDA-Public Use
  Company Number: 2004JP002263

PATIENT
  Age: 14 Month
  Sex: Male

DRUGS (6)
  1. PROGRAF [Suspect]
     Indication: BONE MARROW TRANSPLANT
  2. BUSULFAN      (BUSULFAN) [Concomitant]
  3. CYCLOPHOSPHAMIDE [Concomitant]
  4. ATGAM [Concomitant]
  5. CYCLOSPORINE [Concomitant]
  6. METHYLPREDNISOLONE [Concomitant]

REACTIONS (2)
  - INTESTINAL ISCHAEMIA [None]
  - THROMBOTIC MICROANGIOPATHY [None]
